FAERS Safety Report 24226396 (Version 1)
Quarter: 2024Q3

REPORT INFORMATION
  Report Type: Spontaneous
  Country: RO (occurrence: RO)
  Receive Date: 20240820
  Receipt Date: 20240820
  Transmission Date: 20241016
  Serious: Yes (Death, Other)
  Sender: EPIC PHARM
  Company Number: RO-EPICPHARMA-RO-2024EPCLIT00996

PATIENT
  Age: 43 Year
  Sex: Male

DRUGS (1)
  1. METHADONE HYDROCHLORIDE [Suspect]
     Active Substance: METHADONE HYDROCHLORIDE
     Indication: Drug abuse
     Route: 042

REACTIONS (2)
  - Lung disorder [Fatal]
  - Drug abuse [Unknown]
